FAERS Safety Report 16323497 (Version 2)
Quarter: 2019Q3

REPORT INFORMATION
  Report Type: Report from Study
  Country: DE (occurrence: DE)
  Receive Date: 20190517
  Receipt Date: 20190723
  Transmission Date: 20191004
  Serious: Yes (Other)
  Sender: FDA-Public Use
  Company Number: DE-ROCHE-2119460

PATIENT
  Age: 50 Year
  Sex: Male

DRUGS (7)
  1. OCREVUS [Suspect]
     Active Substance: OCRELIZUMAB
     Route: 042
     Dates: start: 20181022
  2. VITAMIN D3 [Concomitant]
     Active Substance: CHOLECALCIFEROL
     Dosage: 4000 TO 5000 IU
     Route: 065
  3. LORATADIN [Concomitant]
     Active Substance: LORATADINE
     Dosage: AS REQUIRED
     Route: 065
  4. OCREVUS [Suspect]
     Active Substance: OCRELIZUMAB
     Route: 042
     Dates: start: 20180507
  5. OCREVUS [Suspect]
     Active Substance: OCRELIZUMAB
     Indication: PRIMARY PROGRESSIVE MULTIPLE SCLEROSIS
     Route: 042
     Dates: start: 20180423
  6. OCREVUS [Suspect]
     Active Substance: OCRELIZUMAB
     Route: 042
     Dates: start: 20181107
  7. SATIVEX [Concomitant]
     Active Substance: NABIXIMOLS

REACTIONS (6)
  - Multiple sclerosis [Not Recovered/Not Resolved]
  - Gingival swelling [Recovered/Resolved]
  - Hyperhidrosis [Recovered/Resolved]
  - Upper respiratory tract infection [Recovered/Resolved]
  - Body temperature increased [Recovered/Resolved]
  - Skin odour abnormal [Recovered/Resolved]

NARRATIVE: CASE EVENT DATE: 20180423
